FAERS Safety Report 18449875 (Version 1)
Quarter: 2020Q4

REPORT INFORMATION
  Report Type: Spontaneous
  Country: US (occurrence: US)
  Receive Date: 20201102
  Receipt Date: 20201102
  Transmission Date: 20210114
  Serious: Yes (Life-Threatening, Hospitalization, Other)
  Sender: FDA-Public Use
  Company Number: US-009507513-2010USA010032

PATIENT
  Age: 28943 Day
  Sex: Female
  Weight: 68 kg

DRUGS (7)
  1. BRILINTA [Suspect]
     Active Substance: TICAGRELOR
     Indication: CORONARY ARTERY DISEASE
     Dosage: 60 MILLIGRAM, QD
     Route: 048
  2. PRAVACHOL [Concomitant]
     Active Substance: PRAVASTATIN SODIUM
  3. PRINIVIL [Suspect]
     Active Substance: LISINOPRIL
     Indication: HYPERTENSION
     Dosage: 20 MILLIGRAM, ONCE DAILY (QD)
     Route: 048
     Dates: start: 2014
  4. METOPROLOL SUCCINATE. [Suspect]
     Active Substance: METOPROLOL SUCCINATE
     Indication: HYPERTENSION
     Dosage: 25 MG
     Route: 048
     Dates: start: 2014
  5. BRILINTA [Suspect]
     Active Substance: TICAGRELOR
     Indication: STENT PLACEMENT
     Dosage: 60 MILLIGRAM, Q12H
     Route: 048
     Dates: start: 20180619, end: 20180621
  6. TOPROL XL [Suspect]
     Active Substance: METOPROLOL SUCCINATE
     Indication: BLOOD PRESSURE ABNORMAL
     Dosage: 25 MILLIGRAM, ONCE DAILY (QD)
     Route: 048
     Dates: start: 2014
  7. ASPIRIN. [Concomitant]
     Active Substance: ASPIRIN
     Dosage: 81 MILLIGRAM, QD

REACTIONS (18)
  - Anal haemorrhage [Unknown]
  - Dyspnoea exertional [Not Recovered/Not Resolved]
  - Hypotension [Unknown]
  - Intentional product misuse [Unknown]
  - Pain of skin [Unknown]
  - Feeling abnormal [Not Recovered/Not Resolved]
  - Confusional state [Unknown]
  - Off label use [Unknown]
  - Heart rate increased [Unknown]
  - Muscle spasms [Not Recovered/Not Resolved]
  - Coronary artery disease [Recovered/Resolved]
  - Skin haemorrhage [Unknown]
  - Stent malfunction [Unknown]
  - Sleep disorder [Unknown]
  - Blood pressure increased [Unknown]
  - Chest pain [Unknown]
  - Headache [Unknown]
  - Scratch [Unknown]

NARRATIVE: CASE EVENT DATE: 20180619
